FAERS Safety Report 11709712 (Version 2)
Quarter: 2015Q4

REPORT INFORMATION
  Report Type: Spontaneous
  Country: US (occurrence: US)
  Receive Date: 20151104
  Receipt Date: 20151110
  Transmission Date: 20160304
  Serious: No
  Sender: FDA-Public Use
  Company Number: US-ELI_LILLY_AND_COMPANY-US201106005682

PATIENT
  Age: 60 Year
  Sex: Female
  Weight: 54 kg

DRUGS (6)
  1. PREDNISONE. [Concomitant]
     Active Substance: PREDNISONE
  2. PRILOSEC [Concomitant]
     Active Substance: OMEPRAZOLE MAGNESIUM
  3. NORVASC [Concomitant]
     Active Substance: AMLODIPINE BESYLATE
  4. FORTEO [Suspect]
     Active Substance: TERIPARATIDE
     Dosage: 20 UG, QD
     Route: 058
  5. ADVAIR HFA [Concomitant]
     Active Substance: FLUTICASONE PROPIONATE\SALMETEROL XINAFOATE
  6. FORTEO [Suspect]
     Active Substance: TERIPARATIDE
     Indication: OSTEOPOROSIS
     Dosage: 20 UG, QD
     Route: 058
     Dates: start: 20110617

REACTIONS (9)
  - Neuralgia [Unknown]
  - Impaired healing [Unknown]
  - Discomfort [Unknown]
  - Diplopia [Unknown]
  - Injection site bruising [Unknown]
  - Tooth extraction [Unknown]
  - Muscle spasms [Not Recovered/Not Resolved]
  - Intentional product misuse [Unknown]
  - Heart rate increased [Unknown]

NARRATIVE: CASE EVENT DATE: 201107
